FAERS Safety Report 4838194-6 (Version None)
Quarter: 2005Q4

REPORT INFORMATION
  Report Type: 
  Country: None (occurrence: None)
  Receive Date: 20051123
  Receipt Date: 20051116
  Transmission Date: 20060501
  Serious: Yes (Disabling)
  Sender: FDA-Public Use
  Company Number: 2005156936

PATIENT
  Age: 55 Year
  Sex: Female
  Weight: 88 kg

DRUGS (5)
  1. AROMASIN [Suspect]
     Indication: BREAST CANCER
     Dosage: 25 MG (25 MG, OD INTERVAL: DAILY), ORAL
     Route: 048
     Dates: start: 20041117, end: 20050517
  2. CORODIL (ENALAPRIL) [Concomitant]
  3. GLUCOSAMINE (GLUCOSAMINE) [Concomitant]
  4. NOVONORM (REPLAGLINIDE) [Concomitant]
  5. VAGIFEM [Concomitant]

REACTIONS (5)
  - ARTHRALGIA [None]
  - BLOOD CHOLESTEROL INCREASED [None]
  - DEPRESSION [None]
  - GRIP STRENGTH DECREASED [None]
  - WEIGHT DECREASED [None]
